FAERS Safety Report 4650438-2 (Version None)
Quarter: 2005Q2

REPORT INFORMATION
  Report Type: 
  Country: None (occurrence: None)
  Receive Date: 20050429
  Receipt Date: 20050418
  Transmission Date: 20051028
  Serious: Yes (Other)
  Sender: FDA-Public Use
  Company Number: 2005063302

PATIENT
  Age: 55 Year
  Sex: Female

DRUGS (3)
  1. RELPAX [Suspect]
     Indication: CRANIAL NEUROPATHY
     Dosage: 80 MG (40 MG, 2 IN 1 D)
  2. DI-GESIC (DEXTROPROPOXYPHENE, PARACETAMOL) [Concomitant]
  3. ZOLPIDEM TARTRATE [Concomitant]

REACTIONS (3)
  - CONVERSION DISORDER [None]
  - DRUG DEPENDENCE [None]
  - INAPPROPRIATE SCHEDULE OF DRUG ADMINISTRATION [None]
